FAERS Safety Report 25985194 (Version 1)
Quarter: 2025Q4

REPORT INFORMATION
  Report Type: Spontaneous
  Country: US (occurrence: US)
  Receive Date: 20251031
  Receipt Date: 20251031
  Transmission Date: 20260117
  Serious: No
  Sender: Tarsus Pharmaceuticals
  Company Number: US-TARSUS PHARMACEUTICALS-TSP-US-2025-000751

PATIENT
  Age: 83 Year
  Sex: Female

DRUGS (1)
  1. XDEMVY [Suspect]
     Active Substance: LOTILANER
     Indication: Follicular disorder
     Dosage: 1 DROP, BID (INSTILL 1 DROP INTO BOTH EYES BY OPHTHALMIC ROUTE EVERY 12 HOURS FOR 6 WEEKS)
     Route: 047

REACTIONS (3)
  - Burning sensation [Unknown]
  - Pruritus [Unknown]
  - Off label use [Unknown]
